FAERS Safety Report 4432088-6 (Version None)
Quarter: 2004Q3

REPORT INFORMATION
  Report Type: 
  Country: None (occurrence: None)
  Receive Date: 20040825
  Receipt Date: 20040810
  Transmission Date: 20050211
  Serious: Yes (Other)
  Sender: FDA-Public Use
  Company Number: HQWYE177011AUG04

PATIENT
  Age: 40 Year
  Sex: Male
  Weight: 50 kg

DRUGS (6)
  1. ENBREL [Suspect]
     Indication: RHEUMATOID ARTHRITIS
     Route: 058
  2. METHOTREXATE [Suspect]
  3. PREDNISOLONE [Concomitant]
  4. INDOMETHACIN 25MG CAP [Concomitant]
  5. CALCIUM [Concomitant]
     Dosage: TWICE DAILY
  6. IRON [Concomitant]
     Dosage: TWICE DAILY

REACTIONS (2)
  - EOSINOPHILIA [None]
  - HAEMOGLOBIN DECREASED [None]
